FAERS Safety Report 11070240 (Version 1)
Quarter: 2015Q2

REPORT INFORMATION
  Report Type: Spontaneous
  Country: SE (occurrence: SE)
  Receive Date: 20150427
  Receipt Date: 20150427
  Transmission Date: 20150821
  Serious: Yes (Hospitalization)
  Sender: FDA-Public Use
  Company Number: SE-TEVA-557339ISR

PATIENT
  Age: 21 Year
  Sex: Female

DRUGS (3)
  1. PROPAVAN [Concomitant]
     Active Substance: PROPIOMAZINE
  2. OXAZEPAM. [Suspect]
     Active Substance: OXAZEPAM
  3. ATARAX [Concomitant]
     Active Substance: HYDROXYZINE\HYDROXYZINE HYDROCHLORIDE

REACTIONS (1)
  - Toxicity to various agents [Recovered/Resolved]
